FAERS Safety Report 11385999 (Version 1)
Quarter: 2015Q3

REPORT INFORMATION
  Report Type: Spontaneous
  Country: US (occurrence: None)
  Receive Date: 20150813
  Receipt Date: 20150813
  Transmission Date: 20151125
  Serious: Yes (Hospitalization, Disabling, Other)
  Sender: FDA-Public Use
  Company Number: None

PATIENT
  Age: 84 Year
  Sex: Female
  Weight: 74.1 kg

DRUGS (11)
  1. PAROXETINE (PAXIL) [Concomitant]
  2. TETRABENAZINE (XENAZINE) [Concomitant]
  3. OMEPRAZOLE (PRILOSEC) [Concomitant]
  4. XANAX [Concomitant]
     Active Substance: ALPRAZOLAM
  5. SIMVASTATIN (ZOCOR) [Concomitant]
  6. TERBINAFINE 250MG BRECKENRIDGE PHARMACEUTICALS [Suspect]
     Active Substance: TERBINAFINE
     Indication: ONYCHOMYCOSIS
     Route: 048
     Dates: start: 20150511, end: 20150712
  7. INDOMETHACIN (INDOCIN SR) [Concomitant]
  8. DICYCLOMINE (BENTYL) [Concomitant]
  9. SOTALOL (BETAPACE) [Concomitant]
  10. WARFARIN (COUMADIN) [Concomitant]
  11. REMERON [Concomitant]
     Active Substance: MIRTAZAPINE

REACTIONS (5)
  - Abdominal pain upper [None]
  - Abdominal pain [None]
  - Jaundice [None]
  - Vomiting [None]
  - Self-medication [None]

NARRATIVE: CASE EVENT DATE: 20150712
